APPROVED DRUG PRODUCT: DARUNAVIR
Active Ingredient: DARUNAVIR
Strength: 600MG
Dosage Form/Route: TABLET;ORAL
Application: A214085 | Product #001 | TE Code: AB
Applicant: ZYDUS LIFESCIENCES LTD
Approved: Dec 13, 2023 | RLD: No | RS: No | Type: RX